FAERS Safety Report 10010872 (Version 1)
Quarter: 2014Q1

REPORT INFORMATION
  Report Type: Spontaneous
  Country: AU (occurrence: AU)
  Receive Date: 20140314
  Receipt Date: 20140314
  Transmission Date: 20141002
  Serious: Yes (Other)
  Sender: FDA-Public Use
  Company Number: AU-ACCORD-022476

PATIENT
  Age: 69 Year
  Sex: Female

DRUGS (2)
  1. ANASTROZOLE [Suspect]
     Indication: INVASIVE LOBULAR BREAST CARCINOMA
     Route: 048
  2. TAMOXIFEN [Concomitant]
     Indication: INVASIVE LOBULAR BREAST CARCINOMA
     Route: 048

REACTIONS (4)
  - Headache [Recovered/Resolved]
  - Hyperhidrosis [Recovered/Resolved]
  - Arthralgia [Recovered/Resolved]
  - Hypersensitivity vasculitis [Recovered/Resolved]
